FAERS Safety Report 24300032 (Version 1)
Quarter: 2024Q3

REPORT INFORMATION
  Report Type: Spontaneous
  Country: US (occurrence: None)
  Receive Date: 20240909
  Receipt Date: 20240909
  Transmission Date: 20241017
  Serious: Yes (Other)
  Sender: Public
  Company Number: None

PATIENT
  Age: 61 Year
  Sex: Female
  Weight: 76.5 kg

DRUGS (1)
  1. KETOCONAZOLE [Suspect]
     Active Substance: KETOCONAZOLE
     Indication: Tinea versicolour
     Dosage: DAILY TOPICAL
     Route: 061
     Dates: start: 20240820, end: 20240826

REACTIONS (7)
  - Ear pain [None]
  - Oropharyngeal pain [None]
  - Pain in jaw [None]
  - Stomatitis [None]
  - Oropharyngeal blistering [None]
  - Blister [None]
  - Oral mucosal blistering [None]

NARRATIVE: CASE EVENT DATE: 20240826
